FAERS Safety Report 4301867-8 (Version None)
Quarter: 2004Q1

REPORT INFORMATION
  Report Type: 
  Country: None (occurrence: None)
  Receive Date: 20040219
  Receipt Date: 20030312
  Transmission Date: 20041129
  Serious: Yes (Other)
  Sender: FDA-Public Use
  Company Number: PHEH2003US02282

PATIENT
  Sex: Female

DRUGS (3)
  1. LESCOL [Suspect]
  2. ZOCOR [Suspect]
  3. GEMFIBROZIL [Suspect]

REACTIONS (6)
  - CHROMATURIA [None]
  - HEPATIC ENZYME INCREASED [None]
  - JAUNDICE [None]
  - MYALGIA [None]
  - NAUSEA [None]
  - VOMITING [None]
